FAERS Safety Report 8417956 (Version 2)
Quarter: 2012Q4

REPORT INFORMATION
  Report Type: 
  Country: US (occurrence: US)
  Receive Date: 20120221
  Receipt Date: 20121001
  Transmission Date: 20130627
  Serious: Yes (Death)
  Sender: FDA-Public Use
  Company Number: US-US-EMD SERONO, INC.-7113438

PATIENT
  Age: 45 None
  Sex: Male
  Weight: 73 kg

DRUGS (6)
  1. REBIF [Suspect]
     Indication: MULTIPLE SCLEROSIS
     Route: 058
     Dates: start: 20110406
  2. BACLOFEN [Concomitant]
     Indication: PAIN IN EXTREMITY
  3. ANTABUSE [Concomitant]
     Indication: ALCOHOLISM
  4. BUPROPION SR [Concomitant]
     Indication: DEPRESSION
  5. CITALOPRAM [Concomitant]
     Indication: DEPRESSION
  6. VITAMIN D [Concomitant]
     Indication: PRODUCT USED FOR UNKNOWN INDICATION

REACTIONS (2)
  - Death [Fatal]
  - Toxicity to various agents [Unknown]
